FAERS Safety Report 7910465-6 (Version None)
Quarter: 2011Q4

REPORT INFORMATION
  Report Type: 
  Country: None (occurrence: None)
  Receive Date: 20111111
  Receipt Date: 20111028
  Transmission Date: 20120403
  Serious: Yes (Other)
  Sender: FDA-Public Use
  Company Number: PHHY2011JP92882

PATIENT
  Age: 66 Year
  Sex: Male

DRUGS (3)
  1. VITAMIN D [Concomitant]
     Dosage: UNK UKN, UNK
  2. CYCLOSPORINE [Suspect]
     Indication: PSORIASIS
     Dosage: UNK UKN, UNK
     Route: 048
  3. STEROIDS [Concomitant]
     Dosage: UNK UKN, UNK

REACTIONS (4)
  - PSORIASIS [None]
  - RASH [None]
  - PIGMENTATION DISORDER [None]
  - RASH PAPULAR [None]
